FAERS Safety Report 20303633 (Version 3)
Quarter: 2022Q3

REPORT INFORMATION
  Report Type: Report from Study
  Country: US (occurrence: US)
  Receive Date: 20220106
  Receipt Date: 20220630
  Transmission Date: 20221026
  Serious: No
  Sender: FDA-Public Use
  Company Number: US-NOVARTISTESTPH-NVSC2022US001471

PATIENT
  Sex: Male

DRUGS (1)
  1. ENTRESTO [Suspect]
     Active Substance: SACUBITRIL\VALSARTAN
     Indication: Cardiac failure congestive
     Dosage: 50 MG, QD (24/26 MG)
     Route: 048

REACTIONS (4)
  - Malaise [Unknown]
  - Depressed mood [Unknown]
  - Decreased activity [Unknown]
  - Inappropriate schedule of product administration [Unknown]
